APPROVED DRUG PRODUCT: TOPIRAMATE
Active Ingredient: TOPIRAMATE
Strength: 15MG
Dosage Form/Route: CAPSULE;ORAL
Application: A079206 | Product #001
Applicant: CHARTWELL RX SCIENCES LLC
Approved: Oct 14, 2009 | RLD: No | RS: No | Type: DISCN